FAERS Safety Report 18510553 (Version 1)
Quarter: 2020Q4

REPORT INFORMATION
  Report Type: Report from Study
  Country: US (occurrence: US)
  Receive Date: 20201117
  Receipt Date: 20201117
  Transmission Date: 20210114
  Serious: Yes (Other)
  Sender: FDA-Public Use
  Company Number: US-JNJFOC-20201119081

PATIENT
  Age: 30 Year
  Sex: Male

DRUGS (5)
  1. METHOTREXATE. [Concomitant]
     Active Substance: METHOTREXATE
  2. STELARA [Suspect]
     Active Substance: USTEKINUMAB
     Indication: CROHN^S DISEASE
     Route: 058
     Dates: start: 20200121
  3. STELARA [Suspect]
     Active Substance: USTEKINUMAB
  4. FOLIC ACID. [Concomitant]
     Active Substance: FOLIC ACID
  5. TREXALL [Concomitant]
     Active Substance: METHOTREXATE SODIUM

REACTIONS (2)
  - Large intestine polyp [Unknown]
  - Crohn^s disease [Unknown]

NARRATIVE: CASE EVENT DATE: 2020
